FAERS Safety Report 26043203 (Version 1)
Quarter: 2025Q4

REPORT INFORMATION
  Report Type: Spontaneous
  Country: EU (occurrence: EU)
  Receive Date: 20251113
  Receipt Date: 20251113
  Transmission Date: 20260117
  Serious: Yes (Other)
  Sender: NOVO NORDISK
  Company Number: None

PATIENT
  Age: 77 Year
  Sex: Male
  Weight: 82 kg

DRUGS (1)
  1. OZEMPIC [Suspect]
     Active Substance: SEMAGLUTIDE
     Indication: Type 2 diabetes mellitus
     Dosage: 1 MG, QW
     Route: 058
     Dates: start: 20231207, end: 20251015

REACTIONS (1)
  - Optic ischaemic neuropathy [Not Recovered/Not Resolved]

NARRATIVE: CASE EVENT DATE: 20250801
